FAERS Safety Report 20583781 (Version 1)
Quarter: 2022Q1

REPORT INFORMATION
  Report Type: Spontaneous
  Country: NL (occurrence: NL)
  Receive Date: 20220311
  Receipt Date: 20220311
  Transmission Date: 20220423
  Serious: Yes (Hospitalization, Disabling)
  Sender: FDA-Public Use
  Company Number: None

PATIENT
  Age: 25 Year
  Sex: Female
  Weight: 59 kg

DRUGS (4)
  1. EMGALITY [Suspect]
     Active Substance: GALCANEZUMAB-GNLM
     Indication: Migraine
     Dosage: 120 MG, MONTHLY (1/M) (4 WEKEN)
     Route: 065
     Dates: start: 20200824, end: 20211106
  2. FROVATRIPTAN [Concomitant]
     Active Substance: FROVATRIPTAN
     Indication: Product used for unknown indication
     Dosage: UNK UNK, UNKNOWN
  3. IBUPROFEN [Concomitant]
     Active Substance: IBUPROFEN
     Indication: Product used for unknown indication
     Dosage: TABLET, 600 MG (MILLIGRAM)
  4. ALMOTRIPTAN MALATE [Concomitant]
     Active Substance: ALMOTRIPTAN MALATE
     Indication: Product used for unknown indication
     Dosage: OMHULDE TABLET, 12,5 MG (MILLIGRAM)

REACTIONS (24)
  - Psychotic disorder [Recovering/Resolving]
  - Arthralgia [Not Recovered/Not Resolved]
  - Muscle spasms [Not Recovered/Not Resolved]
  - Depressed mood [Not Recovered/Not Resolved]
  - Joint noise [Not Recovered/Not Resolved]
  - Bone pain [Not Recovered/Not Resolved]
  - Musculoskeletal stiffness [Not Recovered/Not Resolved]
  - Myalgia [Not Recovered/Not Resolved]
  - Memory impairment [Recovering/Resolving]
  - Anxiety [Not Recovered/Not Resolved]
  - Blood cholesterol increased [Not Recovered/Not Resolved]
  - Polydipsia [Not Recovered/Not Resolved]
  - Loose tooth [Not Recovered/Not Resolved]
  - Polyuria [Not Recovered/Not Resolved]
  - Raynaud^s phenomenon [Recovering/Resolving]
  - Chills [Recovering/Resolving]
  - Insomnia [Recovering/Resolving]
  - Amenorrhoea [Not Recovered/Not Resolved]
  - Alopecia [Recovering/Resolving]
  - Dry skin [Not Recovered/Not Resolved]
  - Abdominal pain upper [Recovered/Resolved]
  - Abnormal faeces [Not Recovered/Not Resolved]
  - Pruritus [Recovering/Resolving]
  - Infrequent bowel movements [Not Recovered/Not Resolved]

NARRATIVE: CASE EVENT DATE: 20200828
